FAERS Safety Report 8661470 (Version 9)
Quarter: 2013Q1

REPORT INFORMATION
  Report Type: Report from Study
  Country: NL (occurrence: NL)
  Receive Date: 20120712
  Receipt Date: 20130130
  Transmission Date: 20140127
  Serious: Yes (Hospitalization)
  Sender: FDA-Public Use
  Company Number: NL-AMGEN-NLDCT2012042103

PATIENT
  Age: 60 Year
  Sex: Female
  Weight: 63 kg

DRUGS (11)
  1. DENOSUMAB [Suspect]
     Indication: BREAST CANCER
     Dosage: UNK
     Route: 058
     Dates: start: 20120615
  2. CYCLOPHOSPHAMIDE [Concomitant]
     Dosage: 1000 MG, UNK
     Dates: start: 20120706
  3. TAXOTERE [Concomitant]
     Dosage: 120 MG, UNK
     Dates: start: 20120615
  4. DOXORUBICIN [Concomitant]
     Dosage: 80 MG, UNK
  5. ENALAPRIL [Concomitant]
     Dosage: 5 MG, UNK
     Route: 048
     Dates: start: 20120601
  6. BISOPROLOL [Concomitant]
     Dosage: 2.5 MG, UNK
     Route: 048
     Dates: start: 20120601
  7. FUROSEMIDE [Concomitant]
     Dosage: 20 MG, UNK
     Route: 048
     Dates: start: 20120601, end: 20120617
  8. ATORVASTATINE [Concomitant]
     Dosage: 10 MG, UNK
     Route: 048
     Dates: start: 20120601
  9. MULTIVITAMIN [Concomitant]
     Dosage: UNK
     Route: 048
     Dates: start: 20120530
  10. MACROGOL [Concomitant]
     Dosage: 13.7 G, UNK
     Route: 048
     Dates: start: 20120530
  11. AMITRIPTYLINE [Concomitant]
     Dosage: 10 MG, UNK
     Route: 048
     Dates: start: 20120521

REACTIONS (2)
  - Drug hypersensitivity [Recovered/Resolved]
  - Drug hypersensitivity [Recovered/Resolved]
